FAERS Safety Report 13626799 (Version 1)
Quarter: 2017Q2

REPORT INFORMATION
  Report Type: Spontaneous
  Country: US (occurrence: US)
  Receive Date: 20170608
  Receipt Date: 20170608
  Transmission Date: 20170830
  Serious: Yes (Death, Life-Threatening, Disabling, Other)
  Sender: FDA-Public Use
  Company Number: None

PATIENT
  Age: 40 Year
  Sex: Male
  Weight: 100.25 kg

DRUGS (1)
  1. PROPECIA [Suspect]
     Active Substance: FINASTERIDE
     Route: 048
     Dates: start: 200805, end: 201202

REACTIONS (17)
  - Loss of libido [None]
  - Cognitive disorder [None]
  - Blood cholesterol abnormal [None]
  - Sexual dysfunction [None]
  - Depression [None]
  - Fatigue [None]
  - Dry skin [None]
  - Panic attack [None]
  - Anger [None]
  - Stress [None]
  - Obsessive-compulsive disorder [None]
  - Weight increased [None]
  - Anxiety [None]
  - Lip pain [None]
  - Completed suicide [None]
  - Mood swings [None]
  - Insomnia [None]

NARRATIVE: CASE EVENT DATE: 20130305
